FAERS Safety Report 17634401 (Version 2)
Quarter: 2020Q2

REPORT INFORMATION
  Report Type: Report from Study
  Country: AU (occurrence: AU)
  Receive Date: 20200406
  Receipt Date: 20200408
  Transmission Date: 20200713
  Serious: Yes (Other)
  Sender: FDA-Public Use
  Company Number: NVSC2020AU092192

PATIENT
  Sex: Female

DRUGS (1)
  1. FEMARA [Suspect]
     Active Substance: LETROZOLE
     Indication: BREAST CANCER STAGE III
     Dosage: UNK
     Route: 065

REACTIONS (4)
  - Metastases to lymph nodes [Unknown]
  - Invasive ductal breast carcinoma [Unknown]
  - Metastases to bone [Unknown]
  - Breast cancer recurrent [Unknown]
